FAERS Safety Report 6654402-3 (Version None)
Quarter: 2010Q1

REPORT INFORMATION
  Report Type: 
  Country: None (occurrence: None)
  Receive Date: 20100326
  Receipt Date: 20100316
  Transmission Date: 20100710
  Serious: Yes (Hospitalization)
  Sender: FDA-Public Use
  Company Number: GB-PFIZER INC-2010033602

PATIENT
  Age: 56 Year
  Sex: Female

DRUGS (2)
  1. PF-04605412 [Suspect]
     Indication: MALIGNANT MELANOMA
     Dosage: 7.5 MG, CYCLIC, DAY 1
     Route: 042
     Dates: start: 20100216
  2. AMLODIPINE BESILATE [Suspect]
     Indication: HYPERTENSION
     Dosage: 5 MG, 1X/DAY
     Route: 048
     Dates: start: 20100223, end: 20100315

REACTIONS (1)
  - ELECTROCARDIOGRAM QT PROLONGED [None]
